FAERS Safety Report 19521424 (Version 1)
Quarter: 2021Q3

REPORT INFORMATION
  Report Type: Spontaneous
  Country: DE (occurrence: DE)
  Receive Date: 20210712
  Receipt Date: 20210712
  Transmission Date: 20211014
  Serious: Yes (Hospitalization, Other)
  Sender: FDA-Public Use
  Company Number: DE-TEVA-2021-DE-1931674

PATIENT
  Age: 63 Year
  Sex: Male
  Weight: 96 kg

DRUGS (5)
  1. METOPROLOL. [Suspect]
     Active Substance: METOPROLOL
     Dosage: 95 MILLIGRAM DAILY;  1?0?1?0
     Route: 048
  2. ATORVASTATIN [Concomitant]
     Active Substance: ATORVASTATIN
     Dosage: 60 MILLIGRAM DAILY;  0?0?1?0
     Route: 048
  3. LIXIANA 60 MG [Concomitant]
     Active Substance: EDOXABAN TOSYLATE
     Dosage: 60 MILLIGRAM DAILY;  1?0?0?0
     Route: 048
  4. VALSARTAN?1A PHARMA 160MG [Suspect]
     Active Substance: VALSARTAN
     Dosage: 160 MILLIGRAM DAILY;  1?0?0?0
     Route: 048
  5. ALLOPURINOL. [Concomitant]
     Active Substance: ALLOPURINOL
     Dosage: .5 DOSAGE FORMS DAILY; 300 MG, 0.5?0?0?0
     Route: 048

REACTIONS (3)
  - Circulatory collapse [Unknown]
  - Fatigue [Unknown]
  - Headache [Unknown]
